FAERS Safety Report 18209382 (Version 1)
Quarter: 2020Q3

REPORT INFORMATION
  Report Type: Spontaneous
  Country: CA (occurrence: CA)
  Receive Date: 20200828
  Receipt Date: 20200828
  Transmission Date: 20201103
  Serious: Yes (Hospitalization, Other)
  Sender: FDA-Public Use
  Company Number: CA-BAYER-2020-173416

PATIENT
  Sex: Female

DRUGS (1)
  1. KYLEENA [Suspect]
     Active Substance: LEVONORGESTREL
     Dosage: 17.5 ?G PER DAY CONTINOUSLY
     Route: 015

REACTIONS (6)
  - Antibiotic therapy [Unknown]
  - Pain [Unknown]
  - Surgery [Unknown]
  - Pelvic inflammatory disease [Unknown]
  - Hysterectomy [Unknown]
  - Tubo-ovarian abscess [Unknown]
